FAERS Safety Report 11459797 (Version 2)
Quarter: 2015Q4

REPORT INFORMATION
  Report Type: Spontaneous
  Country: US (occurrence: US)
  Receive Date: 20150904
  Receipt Date: 20151013
  Transmission Date: 20160304
  Serious: Yes (Other)
  Sender: FDA-Public Use
  Company Number: US-BAYER-2015-411083

PATIENT
  Age: 24 Year
  Sex: Female

DRUGS (1)
  1. MIRENA [Suspect]
     Active Substance: LEVONORGESTREL
     Dosage: 20 MCG/24HR, CONT
     Route: 015
     Dates: start: 20130911, end: 201508

REACTIONS (5)
  - Headache [None]
  - Abdominal pain [None]
  - Vaginal discharge [None]
  - Device breakage [None]
  - Constipation [None]

NARRATIVE: CASE EVENT DATE: 2015
